FAERS Safety Report 21003230 (Version 8)
Quarter: 2022Q4

REPORT INFORMATION
  Report Type: Report from Study
  Country: CH (occurrence: CH)
  Receive Date: 20220624
  Receipt Date: 20221022
  Transmission Date: 20230112
  Serious: Yes (Hospitalization)
  Sender: FDA-Public Use
  Company Number: CH-ABBVIE-22K-151-4330496-00

PATIENT
  Sex: Male

DRUGS (10)
  1. CARBIDOPA\LEVODOPA [Suspect]
     Active Substance: CARBIDOPA\LEVODOPA
     Indication: Parkinson^s disease
     Dosage: MD: 8.0 ML, CRD: 3.3 ML/H, CRN: 0 ML/H, ED: 1.0 ML
     Dates: start: 20220218, end: 20220530
  2. CARBIDOPA\LEVODOPA [Suspect]
     Active Substance: CARBIDOPA\LEVODOPA
     Dosage: MD: 4.0 ML, CRD: 2.5 ML/H, CRN: 0 ML/H, ED: 1.0 ML?16H THERAPY
     Route: 050
     Dates: start: 20220214, end: 20220216
  3. CARBIDOPA\LEVODOPA [Suspect]
     Active Substance: CARBIDOPA\LEVODOPA
     Dosage: MD: 4.0 ML, CRD: 3.3 ML/H, CRN: 0 ML/H, ED: 1.0 ML
  4. CARBIDOPA\LEVODOPA [Suspect]
     Active Substance: CARBIDOPA\LEVODOPA
     Dosage: MD: 4.0 ML, CRD: 3.3 ML/H, CRN: 0 ML/H, ED: 1.0 ML?16H THERAPY
     Route: 050
     Dates: start: 20220216, end: 20220218
  5. CARBIDOPA\LEVODOPA [Suspect]
     Active Substance: CARBIDOPA\LEVODOPA
     Dosage: MD: 4.0 ML, CRD: 2.5 ML/H, CRN: 0 ML/H, ED: 1.0 ML
     Dates: start: 20220214, end: 20220216
  6. CARBIDOPA\LEVODOPA [Suspect]
     Active Substance: CARBIDOPA\LEVODOPA
     Dosage: MD: 8.0 ML, CRD: 3.3 ML/H, CRN: 0 ML/H, ED: 1.0 ML?16H THERAPY
     Route: 050
     Dates: start: 20220218, end: 20220530
  7. CARBIDOPA\LEVODOPA [Suspect]
     Active Substance: CARBIDOPA\LEVODOPA
     Dosage: MD: 8.0 ML, CRD: 4.0 ML/H, CRN: 0 ML/H, ED: 1.0 ML?16H THERAPY
     Route: 050
     Dates: start: 20220530, end: 20220720
  8. CARBIDOPA\LEVODOPA [Suspect]
     Active Substance: CARBIDOPA\LEVODOPA
     Dosage: MD: 8.0 ML, CRD: 4.0 ML/H, CRN: 0 ML/H, ED: 2.0 ML?16H THERAPY
     Route: 050
     Dates: start: 20220720, end: 20220726
  9. CARBIDOPA\LEVODOPA [Suspect]
     Active Substance: CARBIDOPA\LEVODOPA
     Dosage: MD: 8.0 ML, CRD: 4.2 ML/H, CRN: 0 ML/H, ED: 2.0 ML?16H THERAPY
     Route: 050
     Dates: start: 20220726
  10. BENSERAZIDE HYDROCHLORIDE\LEVODOPA [Concomitant]
     Active Substance: BENSERAZIDE HYDROCHLORIDE\LEVODOPA
     Indication: Parkinson^s disease

REACTIONS (21)
  - Mobility decreased [Recovering/Resolving]
  - Gait disturbance [Not Recovered/Not Resolved]
  - Medical device repositioning [Recovered/Resolved]
  - Fall [Recovering/Resolving]
  - Device information output issue [Recovered/Resolved]
  - Speech disorder [Recovering/Resolving]
  - Confusional state [Not Recovered/Not Resolved]
  - Therapeutic product effect variable [Unknown]
  - Freezing phenomenon [Unknown]
  - Asthenia [Unknown]
  - Posture abnormal [Unknown]
  - Wheelchair user [Unknown]
  - Disease progression [Unknown]
  - Device dislocation [Recovered/Resolved]
  - On and off phenomenon [Not Recovered/Not Resolved]
  - Product dispensing error [Recovered/Resolved]
  - Device occlusion [Unknown]
  - Mobility decreased [Recovering/Resolving]
  - Concussion [Not Recovered/Not Resolved]
  - Balance disorder [Not Recovered/Not Resolved]
  - Fatigue [Not Recovered/Not Resolved]

NARRATIVE: CASE EVENT DATE: 20220101
